FAERS Safety Report 7166908-1 (Version None)
Quarter: 2010Q4

REPORT INFORMATION
  Report Type: 
  Country: None (occurrence: None)
  Receive Date: 20101213
  Receipt Date: 20101213
  Transmission Date: 20110411
  Serious: Yes (Death)
  Sender: FDA-Public Use
  Company Number: None

PATIENT
  Age: 65 Year
  Sex: Female
  Weight: 68.0396 kg

DRUGS (2)
  1. HERCEPTIN [Suspect]
     Indication: BREAST CANCER METASTATIC
     Dosage: Q THREE WEEKS INTRA-ARTERIAL
     Route: 013
     Dates: start: 20100101, end: 20101201
  2. HERCEPTIN [Suspect]
     Indication: METASTASES TO LYMPH NODES
     Dosage: Q THREE WEEKS INTRA-ARTERIAL
     Route: 013
     Dates: start: 20100101, end: 20101201

REACTIONS (6)
  - ABDOMINAL PAIN [None]
  - CONVULSION [None]
  - DISSEMINATED INTRAVASCULAR COAGULATION [None]
  - HYPOTENSION [None]
  - NAUSEA [None]
  - PANCYTOPENIA [None]
